FAERS Safety Report 10256597 (Version 2)
Quarter: 2014Q2

REPORT INFORMATION
  Report Type: Spontaneous
  Country: MX (occurrence: MX)
  Receive Date: 20140624
  Receipt Date: 20140624
  Transmission Date: 20141212
  Serious: Yes (Death)
  Sender: FDA-Public Use
  Company Number: MX-PFIZER INC-2014171401

PATIENT
  Age: 5 Day
  Sex: Male

DRUGS (1)
  1. CAVERJECT [Suspect]
     Indication: CONGENITAL CARDIOVASCULAR ANOMALY
     Dosage: 500 UG, UNK

REACTIONS (1)
  - Death [Fatal]
